FAERS Safety Report 7760229-1 (Version None)
Quarter: 2011Q3

REPORT INFORMATION
  Report Type: 
  Country: None (occurrence: None)
  Receive Date: 20110919
  Receipt Date: 20110914
  Transmission Date: 20111222
  Serious: Yes (Other)
  Sender: FDA-Public Use
  Company Number: US-GLAXOSMITHKLINE-A0944617A

PATIENT
  Age: 42 Year
  Sex: Female

DRUGS (1)
  1. LAMOTRIGINE [Suspect]
     Indication: BIPOLAR DISORDER
     Dosage: 25MG PER DAY
     Route: 048
     Dates: start: 20110722, end: 20110826

REACTIONS (4)
  - STEVENS-JOHNSON SYNDROME [None]
  - RASH GENERALISED [None]
  - OROPHARYNGEAL PAIN [None]
  - ACCIDENTAL OVERDOSE [None]
